FAERS Safety Report 10214375 (Version 1)
Quarter: 2014Q2

REPORT INFORMATION
  Report Type: Spontaneous
  Country: BE (occurrence: BE)
  Receive Date: 20140603
  Receipt Date: 20140603
  Transmission Date: 20141212
  Serious: Yes (Hospitalization)
  Sender: FDA-Public Use
  Company Number: BE-JNJFOC-20140516785

PATIENT
  Sex: Female

DRUGS (2)
  1. PERDOFEMINA [Suspect]
     Route: 048
  2. PERDOFEMINA [Suspect]
     Indication: PRODUCT USED FOR UNKNOWN INDICATION
     Route: 048

REACTIONS (1)
  - Menorrhagia [Recovered/Resolved]
